FAERS Safety Report 9347851 (Version 1)
Quarter: 2013Q2

REPORT INFORMATION
  Report Type: Spontaneous
  Country: US (occurrence: None)
  Receive Date: 20130612
  Receipt Date: 20130612
  Transmission Date: 20140414
  Serious: Yes (Disabling)
  Sender: FDA-Public Use
  Company Number: None

PATIENT
  Age: 66 Year
  Sex: Female
  Weight: 85.28 kg

DRUGS (1)
  1. FLONAISE-FLUTICASONE PROP 50MCG ROXANE LABORATORIES [Suspect]
     Dosage: 2 SPRAYS IN EACH NOSTRIL DAILY
     Dates: start: 201305

REACTIONS (3)
  - Anosmia [None]
  - Ageusia [None]
  - Convulsion [None]
